FAERS Safety Report 11092066 (Version 1)
Quarter: 2015Q2

REPORT INFORMATION
  Report Type: Spontaneous
  Country: FR (occurrence: FR)
  Receive Date: 20150505
  Receipt Date: 20150505
  Transmission Date: 20150821
  Serious: Yes (Hospitalization)
  Sender: FDA-Public Use
  Company Number: FR-AMGEN-FRASP2015042904

PATIENT
  Age: 52 Year
  Sex: Female

DRUGS (9)
  1. REMICADE [Suspect]
     Active Substance: INFLIXIMAB
     Indication: GUTTATE PSORIASIS
     Dosage: 6 COURSES OF 5 MG/KG
     Route: 042
     Dates: start: 20080312, end: 20081001
  2. NOVATREX (METHOTREXATE) [Suspect]
     Active Substance: METHOTREXATE SODIUM
     Dosage: 10 MG, WEEKLY
     Route: 048
     Dates: start: 20091119, end: 20100310
  3. STELARA [Suspect]
     Active Substance: USTEKINUMAB
     Indication: GUTTATE PSORIASIS
     Dosage: 45 MG SINGLE DOSE ON DAY 1 AND DAY 28 THEN EVERY 12 WEEKS
     Route: 058
     Dates: start: 20100208, end: 20141123
  4. ENBREL [Suspect]
     Active Substance: ETANERCEPT
     Indication: PRODUCT USED FOR UNKNOWN INDICATION
     Dosage: 50 MG, 2X/WEEK FOR 12 WEEKS
     Route: 058
     Dates: start: 200711, end: 2008
  5. NOVATREX (METHOTREXATE) [Suspect]
     Active Substance: METHOTREXATE SODIUM
     Indication: GUTTATE PSORIASIS
     Dosage: 20 MG, WEEKLY
     Route: 048
     Dates: start: 200502
  6. RAPTIVA [Suspect]
     Active Substance: EFALIZUMAB
     Indication: GUTTATE PSORIASIS
     Dosage: UNK
     Route: 058
     Dates: start: 200602, end: 2006
  7. NEORAL [Suspect]
     Active Substance: CYCLOSPORINE
     Dosage: 150 TO 200 MG DAILY
     Route: 048
     Dates: start: 200602, end: 200710
  8. HUMIRA [Suspect]
     Active Substance: ADALIMUMAB
     Indication: GUTTATE PSORIASIS
     Dosage: 40 MG, EVERY 2 WEEKS
     Route: 058
     Dates: start: 20081124, end: 20090209
  9. NEORAL [Suspect]
     Active Substance: CYCLOSPORINE
     Indication: GUTTATE PSORIASIS
     Dosage: 150 TO 300 MG DAILY
     Route: 048
     Dates: start: 200504

REACTIONS (2)
  - Breast cancer [Not Recovered/Not Resolved]
  - Drug ineffective [Unknown]

NARRATIVE: CASE EVENT DATE: 20141205
